FAERS Safety Report 9413939 (Version 1)
Quarter: 2013Q3

REPORT INFORMATION
  Report Type: Spontaneous
  Country: US (occurrence: US)
  Receive Date: 20130723
  Receipt Date: 20130723
  Transmission Date: 20140515
  Serious: No
  Sender: FDA-Public Use
  Company Number: US-B.I. PHARMACEUTICALS,INC./RIDGEFIELD-2013-BI-21242BP

PATIENT
  Age: 46 Year
  Sex: Female

DRUGS (2)
  1. SPIRIVA [Suspect]
     Route: 055
     Dates: start: 201210
  2. LIDODERM [Concomitant]
     Dosage: (PATCH)

REACTIONS (3)
  - Dizziness [Unknown]
  - Dizziness [Unknown]
  - Vomiting [Unknown]
